FAERS Safety Report 11722310 (Version 1)
Quarter: 2015Q4

REPORT INFORMATION
  Report Type: Report from Study
  Country: US (occurrence: US)
  Receive Date: 20151111
  Receipt Date: 20151111
  Transmission Date: 20160304
  Serious: No
  Sender: FDA-Public Use
  Company Number: US-AMGEN-USASL2015116349

PATIENT
  Age: 51 Year
  Sex: Female

DRUGS (1)
  1. ENBREL [Suspect]
     Active Substance: ETANERCEPT
     Indication: RHEUMATOID ARTHRITIS
     Dosage: UNK UNK, QWK
     Route: 065
     Dates: start: 20150911

REACTIONS (18)
  - Feeling abnormal [Unknown]
  - Erythema [Unknown]
  - Groin pain [Unknown]
  - Poor quality sleep [Unknown]
  - Musculoskeletal disorder [Unknown]
  - Muscle spasms [Unknown]
  - Adverse drug reaction [Unknown]
  - Swelling face [Unknown]
  - Feeling cold [Unknown]
  - Joint crepitation [Unknown]
  - Eye swelling [Unknown]
  - Skin ulcer [Unknown]
  - Oral pruritus [Unknown]
  - Pruritus [Unknown]
  - Pain of skin [Unknown]
  - Finger deformity [Unknown]
  - Spinal disorder [Unknown]
  - Drug ineffective [Unknown]

NARRATIVE: CASE EVENT DATE: 2015
